FAERS Safety Report 8539653-5 (Version None)
Quarter: 2012Q3

REPORT INFORMATION
  Report Type: 
  Country: None (occurrence: None)
  Receive Date: 20120726
  Receipt Date: 20110720
  Transmission Date: 20120928
  Serious: No
  Sender: FDA-Public Use
  Company Number: US-ASTRAZENECA-2008UW26981

PATIENT
  Age: 19969 Day
  Sex: Female
  Weight: 108.9 kg

DRUGS (11)
  1. SEROQUEL [Suspect]
     Indication: DEPRESSION
     Route: 048
     Dates: start: 20040701
  2. KLONOPIN [Concomitant]
     Dates: start: 20060101
  3. SEROQUEL [Suspect]
     Indication: BIPOLAR DISORDER
     Route: 048
     Dates: start: 20040701
  4. LITHOBID [Concomitant]
     Dates: start: 20060101
  5. METABOLIFE [Concomitant]
     Dates: start: 20000101
  6. THYROID TAB [Concomitant]
     Dosage: 120 MG WEEKLY
     Dates: start: 20060101
  7. NEXIUM [Concomitant]
     Dates: start: 20060101
  8. LIPITOR [Concomitant]
     Dates: start: 20060101
  9. SEROQUEL [Suspect]
     Route: 048
     Dates: start: 20060101
  10. SEROQUEL [Suspect]
     Route: 048
     Dates: start: 20060101
  11. LAMICTAL [Concomitant]
     Dates: start: 20060101

REACTIONS (5)
  - URINARY INCONTINENCE [None]
  - ACCIDENT AT WORK [None]
  - TYPE 2 DIABETES MELLITUS [None]
  - OBESITY [None]
  - WEIGHT INCREASED [None]
